FAERS Safety Report 8924165 (Version 1)
Quarter: 2012Q4

REPORT INFORMATION
  Report Type: Spontaneous
  Country: GB (occurrence: None)
  Receive Date: 20121116
  Receipt Date: 20121116
  Transmission Date: 20130627
  Serious: Yes (Other)
  Sender: FDA-Public Use
  Company Number: GER/UKI/12/0026611

PATIENT
  Age: 35 Year
  Sex: Female
  Weight: 53.52 kg

DRUGS (1)
  1. CIPROFLOXACIN (CIPROFLOXACIN) [Suspect]
     Indication: URINARY TRACT INFECTION
     Dosage: 500 mg,  2 in 1 D,  Oral
     Route: 048
     Dates: start: 20120831, end: 20120902

REACTIONS (11)
  - Anxiety [None]
  - Arthralgia [None]
  - Tendon pain [None]
  - Faeces discoloured [None]
  - Muscle atrophy [None]
  - Paraesthesia [None]
  - Insomnia [None]
  - Joint crepitation [None]
  - Diarrhoea [None]
  - Activities of daily living impaired [None]
  - Tachycardia [None]
